FAERS Safety Report 6869287-X (Version None)
Quarter: 2010Q3

REPORT INFORMATION
  Report Type: 
  Country: None (occurrence: None)
  Receive Date: 20100722
  Receipt Date: 20080717
  Transmission Date: 20110219
  Serious: No
  Sender: FDA-Public Use
  Company Number: US-PFIZER INC-2008061291

PATIENT
  Sex: Male
  Weight: 129.5 kg

DRUGS (6)
  1. CHANTIX [Suspect]
     Indication: SMOKING CESSATION THERAPY
     Dates: start: 20070201
  2. ANALGESICS [Concomitant]
  3. RISPERDAL [Concomitant]
  4. BENZTROPINE MESYLATE [Concomitant]
  5. TRAZODONE [Concomitant]
  6. VALIUM [Concomitant]

REACTIONS (2)
  - ABDOMINAL DISCOMFORT [None]
  - CONSTIPATION [None]
